FAERS Safety Report 16730860 (Version 2)
Quarter: 2019Q3

REPORT INFORMATION
  Report Type: Spontaneous
  Country: BE (occurrence: BE)
  Receive Date: 20190822
  Receipt Date: 20190823
  Transmission Date: 20191005
  Serious: Yes (Death, Life-Threatening, Hospitalization, Other)
  Sender: FDA-Public Use
  Company Number: PHHY2019BE194342

PATIENT
  Age: 65 Year
  Sex: Female

DRUGS (12)
  1. ARIPIPRAZOLE. [Suspect]
     Active Substance: ARIPIPRAZOLE
     Indication: MENTAL DISORDER
     Dosage: 15 MG, QD
     Route: 065
  2. BUPROPION. [Suspect]
     Active Substance: BUPROPION
     Indication: MENTAL DISORDER
     Dosage: 300 MG, QD
     Route: 065
  3. NEFOPAM [Suspect]
     Active Substance: NEFOPAM
     Dosage: 30 MG, UNK
     Route: 048
  4. AMITRIPTYLINE [Suspect]
     Active Substance: AMITRIPTYLINE
     Indication: DEPRESSION
     Dosage: 75 MG, QD
     Route: 065
  5. NEFOPAM [Suspect]
     Active Substance: NEFOPAM
     Indication: ANALGESIC THERAPY
     Dosage: 60 MG, QD
     Route: 048
  6. NOREPINEPHRINE. [Concomitant]
     Active Substance: NOREPINEPHRINE
     Indication: SUPRAVENTRICULAR TACHYCARDIA
     Dosage: (UP TO 6 MICROG/KG/MIN)
     Route: 050
  7. TRAMADOL. [Suspect]
     Active Substance: TRAMADOL
     Indication: MENTAL DISORDER
     Dosage: 300 MG, QD
     Route: 065
  8. AMISULPRIDE [Suspect]
     Active Substance: AMISULPRIDE
     Indication: MENTAL DISORDER
     Dosage: 50 MG, QD
     Route: 065
  9. NEFOPAM [Suspect]
     Active Substance: NEFOPAM
     Dosage: 120 MG, UNK
     Route: 048
  10. MIRTAZAPINE. [Suspect]
     Active Substance: MIRTAZAPINE
     Indication: MENTAL DISORDER
     Dosage: 15 MG, QD
     Route: 065
  11. AMITRIPTYLINE [Suspect]
     Active Substance: AMITRIPTYLINE
     Indication: MENTAL DISORDER
  12. EPINEPHRINE. [Concomitant]
     Active Substance: EPINEPHRINE
     Indication: SUPRAVENTRICULAR TACHYCARDIA
     Dosage: (UP TO 6 MICROG/KG/MIN)
     Route: 050

REACTIONS (9)
  - Serotonin syndrome [Fatal]
  - Supraventricular tachycardia [Unknown]
  - Hyperlactacidaemia [Unknown]
  - Chronic obstructive pulmonary disease [Unknown]
  - Loss of consciousness [Unknown]
  - Drug ineffective [Unknown]
  - Haemodynamic instability [Unknown]
  - Shock [Fatal]
  - Respiratory failure [Unknown]
